FAERS Safety Report 16703854 (Version 3)
Quarter: 2020Q3

REPORT INFORMATION
  Report Type: Spontaneous
  Country: AU (occurrence: AU)
  Receive Date: 20190814
  Receipt Date: 20200710
  Transmission Date: 20201102
  Serious: Yes (Death, Disabling)
  Sender: FDA-Public Use
  Company Number: AU-EISAI MEDICAL RESEARCH-EC-2019-060364

PATIENT
  Age: 50 Year
  Sex: Male
  Weight: 63 kg

DRUGS (3)
  1. ENTECAVIR. [Concomitant]
     Active Substance: ENTECAVIR
     Indication: HEPATITIS B
     Dates: start: 20180914
  2. LENVIMA [Suspect]
     Active Substance: LENVATINIB
     Indication: HEPATOCELLULAR CARCINOMA
     Route: 048
     Dates: start: 20190601, end: 2019
  3. LENVIMA [Suspect]
     Active Substance: LENVATINIB
     Route: 048
     Dates: start: 201907, end: 20190728

REACTIONS (2)
  - Angioedema [Unknown]
  - Death [Fatal]

NARRATIVE: CASE EVENT DATE: 20190711
